FAERS Safety Report 9319335 (Version 1)
Quarter: 2013Q2

REPORT INFORMATION
  Report Type: Spontaneous
  Country: US (occurrence: None)
  Receive Date: 20130524
  Receipt Date: 20130524
  Transmission Date: 20140414
  Serious: Yes (Other)
  Sender: FDA-Public Use
  Company Number: 001536535A

PATIENT
  Age: 36 Year
  Sex: Female

DRUGS (6)
  1. PROACTIV RENEWING CLEANSER [Suspect]
     Indication: ACNE
     Dosage: ONCE DAILY DERMAL
     Dates: start: 20130505, end: 20130506
  2. PROACTIV REPAIRING TREATMENT [Suspect]
     Indication: ACNE
     Dosage: ONCE DAILY DERMAL
     Dates: start: 20130505, end: 20130506
  3. PROACTIV DARK SPOT CORRECTOR [Suspect]
     Indication: ACNE
     Dosage: ONCE DAILY DERMAL
     Dates: start: 20130505, end: 20130506
  4. TYLENOL [Concomitant]
  5. VITAMIN B12 [Concomitant]
  6. VITAMIN C [Concomitant]

REACTIONS (5)
  - Pruritus [None]
  - Swelling face [None]
  - Pharyngeal oedema [None]
  - Dyspnoea [None]
  - Hypersensitivity [None]
